FAERS Safety Report 6016487-7 (Version None)
Quarter: 2008Q4

REPORT INFORMATION
  Report Type: 
  Country: None (occurrence: None)
  Receive Date: 20081222
  Receipt Date: 20081210
  Transmission Date: 20090506
  Serious: Yes (Hospitalization)
  Sender: FDA-Public Use
  Company Number: DK-PFIZER INC-2008151920

PATIENT

DRUGS (3)
  1. ZOLOFT [Suspect]
     Indication: DEPRESSION
     Route: 048
  2. LAMICTAL [Concomitant]
     Dosage: UNK
     Dates: start: 20060101
  3. SEROQUEL [Concomitant]
     Dosage: UNK
     Dates: start: 20070101

REACTIONS (2)
  - DELUSIONAL DISORDER, PERSECUTORY TYPE [None]
  - MANIA [None]
